FAERS Safety Report 10203242 (Version 2)
Quarter: 2014Q2

REPORT INFORMATION
  Report Type: Spontaneous
  Country: US (occurrence: US)
  Receive Date: 20140529
  Receipt Date: 20140603
  Transmission Date: 20141212
  Serious: Yes (Other)
  Sender: FDA-Public Use
  Company Number: US-SUN PHARMACEUTICAL INDUSTRIES LTD-2014SUN01170

PATIENT
  Sex: 0

DRUGS (1)
  1. PROPAFENONE HYDROCHLORIDE TABLETS, 225 MG [Suspect]
     Indication: ARRHYTHMIA
     Dosage: 225 MG, THREE TIMES A DAY
     Route: 065

REACTIONS (2)
  - Colitis ulcerative [Not Recovered/Not Resolved]
  - Haematochezia [Not Recovered/Not Resolved]
